FAERS Safety Report 6455415-7 (Version None)
Quarter: 2009Q4

REPORT INFORMATION
  Report Type: 
  Country: None (occurrence: None)
  Receive Date: 20091125
  Receipt Date: 20090818
  Transmission Date: 20100525
  Serious: No
  Sender: FDA-Public Use
  Company Number: US-ABBOTT-09P-163-0592537-00

PATIENT
  Sex: Male
  Weight: 92.162 kg

DRUGS (4)
  1. SIMCOR [Suspect]
     Indication: LOW DENSITY LIPOPROTEIN INCREASED
     Dosage: 500/20 MG
     Route: 048
     Dates: start: 20090701
  2. SIMCOR [Suspect]
     Indication: LOW DENSITY LIPOPROTEIN DECREASED
     Dosage: 1000/20 MG
     Route: 048
  3. UNKNOWN BLOOD PRESSURE [Concomitant]
     Indication: DRUG USE FOR UNKNOWN INDICATION
  4. ASPIRIN [Concomitant]
     Indication: DRUG USE FOR UNKNOWN INDICATION

REACTIONS (3)
  - BURNING SENSATION [None]
  - ERYTHEMA [None]
  - PARAESTHESIA [None]
